FAERS Safety Report 23122255 (Version 1)
Quarter: 2023Q4

REPORT INFORMATION
  Report Type: Spontaneous
  Country: US (occurrence: US)
  Receive Date: 20231030
  Receipt Date: 20231030
  Transmission Date: 20240110
  Serious: No
  Sender: FDA-Public Use
  Company Number: US-SUN PHARMACEUTICAL INDUSTRIES LTD-2023R1-382537

PATIENT
  Sex: Female

DRUGS (1)
  1. XELPROS [Suspect]
     Active Substance: LATANOPROST
     Indication: Glaucoma
     Dosage: UNK ONE DROP IN EACH EYE, AT BEDTIME, EVERY DAY
     Route: 047

REACTIONS (3)
  - Ocular discomfort [Unknown]
  - Therapy cessation [Unknown]
  - Pain [Unknown]
